FAERS Safety Report 4619350-9 (Version None)
Quarter: 2005Q2

REPORT INFORMATION
  Report Type: 
  Country: None (occurrence: None)
  Receive Date: 20050321
  Receipt Date: 20040318
  Transmission Date: 20051028
  Serious: Yes (Other)
  Sender: FDA-Public Use
  Company Number: 2004-03-1491

PATIENT
  Age: 50 Year
  Sex: Male

DRUGS (3)
  1. PEG-INTRON [Suspect]
     Indication: HEPATITIS C
     Dosage: 120 MCG QW SUBCUTANEOUS
     Route: 058
     Dates: start: 20030801, end: 20040310
  2. REBETOL [Suspect]
     Indication: HEPATITIS C
     Dosage: 800 MG QD ORAL
     Route: 048
     Dates: start: 20030801, end: 20040310
  3. DOXAZOSIN MESYLATE [Concomitant]

REACTIONS (2)
  - DEPRESSION SUICIDAL [None]
  - MENTAL DISORDER [None]
